FAERS Safety Report 9746980 (Version 1)
Quarter: 2013Q4

REPORT INFORMATION
  Report Type: Spontaneous
  Country: US (occurrence: US)
  Receive Date: 20131211
  Receipt Date: 20131211
  Transmission Date: 20140711
  Serious: No
  Sender: FDA-Public Use
  Company Number: US-B.I. PHARMACEUTICALS,INC./RIDGEFIELD-2013-BI-38546BP

PATIENT
  Age: 78 Year
  Sex: Male
  Weight: 91 kg

DRUGS (6)
  1. SPIRIVA [Suspect]
     Indication: CHRONIC OBSTRUCTIVE PULMONARY DISEASE
     Dosage: 18 MCG
     Route: 055
     Dates: start: 20131101
  2. GABAPENTIN [Concomitant]
     Indication: NERVOUS SYSTEM DISORDER
     Dosage: 800 MG
     Route: 048
     Dates: start: 2012
  3. ISOSORBIDE [Concomitant]
     Indication: BLOOD PRESSURE MANAGEMENT
     Dosage: 30 MG
     Route: 048
     Dates: start: 201305
  4. SIMVASTATIN [Concomitant]
     Indication: BLOOD CHOLESTEROL ABNORMAL
     Dosage: 40 MG
     Route: 048
     Dates: start: 2012
  5. PLETAL [Concomitant]
     Indication: PAIN IN EXTREMITY
     Dosage: 200 MG
     Route: 048
     Dates: start: 1998
  6. LOPRESSOR [Concomitant]
     Indication: BLOOD PRESSURE MANAGEMENT
     Dosage: 50 MG
     Route: 048
     Dates: start: 2012

REACTIONS (2)
  - Breath odour [Not Recovered/Not Resolved]
  - Breath odour [Not Recovered/Not Resolved]
